FAERS Safety Report 6154397-5 (Version None)
Quarter: 2009Q2

REPORT INFORMATION
  Report Type: 
  Country: None (occurrence: None)
  Receive Date: 20090414
  Receipt Date: 20090403
  Transmission Date: 20091009
  Serious: Yes (Other)
  Sender: FDA-Public Use
  Company Number: FR-ELI_LILLY_AND_COMPANY-FR200904001007

PATIENT
  Age: 82 Year
  Sex: Female

DRUGS (2)
  1. CYMBALTA [Suspect]
     Dosage: 60 MG, DAILY (1/D)
     Route: 048
     Dates: start: 20080901
  2. VOLTAREN [Interacting]
     Indication: ARTHRALGIA
     Dosage: UNK, 2/D
     Route: 048
     Dates: start: 20090301, end: 20090301

REACTIONS (2)
  - DRUG INTERACTION [None]
  - TACHYARRHYTHMIA [None]
